FAERS Safety Report 10478866 (Version 1)
Quarter: 2014Q3

REPORT INFORMATION
  Report Type: Report from Study
  Country: US (occurrence: US)
  Receive Date: 20140926
  Receipt Date: 20140926
  Transmission Date: 20150326
  Serious: Yes (Other)
  Sender: FDA-Public Use
  Company Number: US-009507513-1409USA013303

PATIENT
  Age: 61 Year

DRUGS (3)
  1. VELCADE [Suspect]
     Active Substance: BORTEZOMIB
     Indication: PLASMA CELL MYELOMA
     Dosage: 1.3 MG/M2, FREQUENCY : 1?WEEKLY, NO REST PERIOD: DAY 1Q 7D
     Route: 042
     Dates: start: 20101204, end: 20110429
  2. CYTOXAN [Suspect]
     Active Substance: CYCLOPHOSPHAMIDE
     Indication: PLASMA CELL MYELOMA
     Dosage: 750 MG, FREQUENCY: DAYS 1,8,15,22
     Route: 048
     Dates: start: 20101204, end: 20110429
  3. DEXAMETHASONE. [Suspect]
     Active Substance: DEXAMETHASONE
     Indication: PLASMA CELL MYELOMA
     Dosage: 40 MG, FREQUENCY : DAY OF AND AFTER VELCADE
     Route: 048
     Dates: start: 20101204, end: 20110430

REACTIONS (2)
  - Cough [Unknown]
  - Dyspnoea [Unknown]

NARRATIVE: CASE EVENT DATE: 20110412
